FAERS Safety Report 22294008 (Version 3)
Quarter: 2023Q2

REPORT INFORMATION
  Report Type: Spontaneous
  Country: IN (occurrence: IN)
  Receive Date: 20230508
  Receipt Date: 20230605
  Transmission Date: 20230721
  Serious: Yes (Other)
  Sender: FDA-Public Use
  Company Number: IN-PFIZER INC-PV202300079130

PATIENT
  Age: 70 Year
  Sex: Male
  Weight: 45 kg

DRUGS (2)
  1. CRIZOTINIB [Suspect]
     Active Substance: CRIZOTINIB
     Indication: Non-small cell lung cancer metastatic
     Dosage: UNK
     Route: 048
  2. CRIZOTINIB [Suspect]
     Active Substance: CRIZOTINIB
     Dosage: 2 DF, 1X/DAY
     Dates: start: 202301

REACTIONS (2)
  - Coronary artery disease [Recovered/Resolved]
  - Tremor [Recovered/Resolved]
